FAERS Safety Report 20315944 (Version 2)
Quarter: 2022Q1

REPORT INFORMATION
  Report Type: Spontaneous
  Country: US (occurrence: US)
  Receive Date: 20220110
  Receipt Date: 20220325
  Transmission Date: 20220424
  Serious: Yes (Hospitalization, Other)
  Sender: FDA-Public Use
  Company Number: US-BIOVITRUM-2022US00247

PATIENT
  Sex: Male

DRUGS (4)
  1. SYNAGIS [Suspect]
     Active Substance: PALIVIZUMAB
     Indication: Bronchopulmonary dysplasia
     Dosage: 15MG/KG/DOSE
     Route: 030
     Dates: start: 202111
  2. SYNAGIS [Suspect]
     Active Substance: PALIVIZUMAB
     Indication: Antiviral prophylaxis
     Dates: start: 20211208
  3. SYNAGIS [Suspect]
     Active Substance: PALIVIZUMAB
     Dosage: 50MG/0.5ML
     Dates: start: 20220118
  4. BACITRACIN [Concomitant]
     Active Substance: BACITRACIN
     Dosage: THREE TIMES A DAY FOR 5 DAYS

REACTIONS (4)
  - Respiratory syncytial virus infection [Unknown]
  - Enterovirus infection [Unknown]
  - Bronchiolitis [Unknown]
  - Rhinovirus infection [Unknown]
